FAERS Safety Report 24915731 (Version 1)
Quarter: 2025Q1

REPORT INFORMATION
  Report Type: Spontaneous
  Country: US (occurrence: US)
  Receive Date: 20250203
  Receipt Date: 20250203
  Transmission Date: 20250409
  Serious: Yes (Hospitalization)
  Sender: AUROBINDO
  Company Number: US-AUROBINDO-AUR-APL-2025-004577

PATIENT
  Age: 29 Year
  Sex: Female

DRUGS (11)
  1. ALPRAZOLAM [Suspect]
     Active Substance: ALPRAZOLAM
     Indication: Anxiety
     Route: 065
  2. PRAZOSIN [Suspect]
     Active Substance: PRAZOSIN
     Indication: Nightmare
     Route: 065
  3. PRAZOSIN [Suspect]
     Active Substance: PRAZOSIN
     Indication: Hyperarousal
  4. PRAZOSIN [Suspect]
     Active Substance: PRAZOSIN
     Indication: Anxiety
  5. PHENOBARBITAL [Suspect]
     Active Substance: PHENOBARBITAL
     Indication: Alcohol withdrawal syndrome
     Route: 065
  6. NALTREXONE [Suspect]
     Active Substance: NALTREXONE
     Indication: Alcoholism
     Route: 048
  7. LITHIUM [Suspect]
     Active Substance: LITHIUM
     Indication: Suicidal behaviour
     Route: 065
  8. LITHIUM [Suspect]
     Active Substance: LITHIUM
     Indication: Depression
  9. LITHIUM [Suspect]
     Active Substance: LITHIUM
     Indication: Affect lability
  10. LITHIUM [Suspect]
     Active Substance: LITHIUM
     Indication: Depressed mood
  11. LITHIUM [Suspect]
     Active Substance: LITHIUM
     Indication: Impulsive behaviour

REACTIONS (3)
  - Withdrawal syndrome [Unknown]
  - Intentional product misuse [Unknown]
  - Drug ineffective [Unknown]
